FAERS Safety Report 5500423-3 (Version None)
Quarter: 2007Q4

REPORT INFORMATION
  Report Type: 
  Country: None (occurrence: None)
  Receive Date: 20071029
  Receipt Date: 20071024
  Transmission Date: 20080405
  Serious: Yes (Hospitalization, Other)
  Sender: FDA-Public Use
  Company Number: US-BRISTOL-MYERS SQUIBB COMPANY-13933569

PATIENT
  Age: 53 Year
  Sex: Male
  Weight: 86 kg

DRUGS (4)
  1. CETUXIMAB [Suspect]
     Indication: SQUAMOUS CELL CARCINOMA
     Dates: start: 20071002, end: 20071002
  2. CISPLATIN [Suspect]
     Indication: SQUAMOUS CELL CARCINOMA
     Dates: start: 20071002, end: 20071002
  3. RADIATION THERAPY [Suspect]
     Indication: SQUAMOUS CELL CARCINOMA
     Dosage: TOTAL DOSE=4600 CGY
     Dates: end: 20071005
  4. DEXAMETHASONE 0.5MG TAB [Suspect]

REACTIONS (14)
  - ANOREXIA [None]
  - DIARRHOEA [None]
  - DYSPHAGIA [None]
  - HAEMOGLOBIN DECREASED [None]
  - HYPERGLYCAEMIA [None]
  - HYPOALBUMINAEMIA [None]
  - HYPOCALCAEMIA [None]
  - HYPOKALAEMIA [None]
  - HYPOMAGNESAEMIA [None]
  - HYPONATRAEMIA [None]
  - PLATELET COUNT DECREASED [None]
  - STOMATITIS [None]
  - WEIGHT DECREASED [None]
  - WHITE BLOOD CELL COUNT DECREASED [None]
